FAERS Safety Report 26213584 (Version 1)
Quarter: 2025Q4

REPORT INFORMATION
  Report Type: Other
  Country: RU (occurrence: RU)
  Receive Date: 20251230
  Receipt Date: 20251230
  Transmission Date: 20260119
  Serious: Yes (Hospitalization, Other)
  Sender: GLENMARK
  Company Number: RU-GLENMARK PHARMACEUTICALS-2025GMK106933

PATIENT
  Age: 25 Year
  Sex: Female

DRUGS (3)
  1. LEVOFLOXACIN [Interacting]
     Active Substance: LEVOFLOXACIN
     Indication: Oral infection
     Dosage: 500 MILLIGRAM
     Route: 048
     Dates: start: 20251212, end: 20251214
  2. DIPYRONE [Interacting]
     Active Substance: DIPYRONE
     Indication: Product used for unknown indication
     Dosage: 500 MILLIGRAM, TID (SINGLE DOSE FREQUENCY)
     Route: 048
     Dates: start: 20251212, end: 20251214
  3. CETIRIZINE HYDROCHLORIDE [Interacting]
     Active Substance: CETIRIZINE HYDROCHLORIDE
     Indication: Product used for unknown indication
     Dosage: 10 MILLIGRAM
     Route: 048
     Dates: start: 20251212, end: 20251214

REACTIONS (2)
  - Angioedema [Recovering/Resolving]
  - Drug interaction [Unknown]

NARRATIVE: CASE EVENT DATE: 20251214
